FAERS Safety Report 19533531 (Version 2)
Quarter: 2021Q4

REPORT INFORMATION
  Report Type: Spontaneous
  Country: FR (occurrence: FR)
  Receive Date: 20210713
  Receipt Date: 20211119
  Transmission Date: 20220303
  Serious: Yes (Hospitalization)
  Sender: FDA-Public Use
  Company Number: None

PATIENT
  Age: 73 Year
  Sex: Female
  Weight: 56 kg

DRUGS (8)
  1. CARBOPLATIN [Suspect]
     Active Substance: CARBOPLATIN
     Indication: Ovarian cancer
     Dosage: 60 MILLIGRAM, CYCLE
     Route: 042
     Dates: start: 20201214, end: 20201214
  2. PREDNISOLONE [Concomitant]
     Active Substance: PREDNISOLONE
     Indication: Chemotherapy side effect prophylaxis
     Dosage: 20 MILLIGRAM, CYCLE
     Route: 048
     Dates: start: 20201214, end: 20201214
  3. EMEND                              /01627301/ [Concomitant]
     Indication: Chemotherapy side effect prophylaxis
     Dosage: 125 MILLIGRAM, CYCLE
     Route: 048
     Dates: start: 20201214, end: 20201214
  4. ZOPHREN                            /00955302/ [Concomitant]
     Indication: Chemotherapy side effect prophylaxis
     Dosage: 8 MILLIGRAM
     Route: 048
     Dates: start: 20201214, end: 20201214
  5. ATEZOLIZUMAB [Concomitant]
     Active Substance: ATEZOLIZUMAB
     Indication: Ovarian cancer
     Dosage: 500 MILLIGRAM, CYCLE
     Route: 042
     Dates: start: 20201214, end: 20201214
  6. AVASTIN                            /01555201/ [Concomitant]
     Indication: Ovarian cancer
     Dosage: 837 MILLIGRAM, CYCLE
     Route: 042
     Dates: start: 20201214, end: 20201214
  7. PACLITAXEL [Concomitant]
     Active Substance: PACLITAXEL
     Indication: Ovarian cancer
     Dosage: 276 MILLIGRAM, CYCLE
     Route: 042
     Dates: start: 20201214, end: 20201214
  8. EMLA                               /00675501/ [Concomitant]
     Indication: Chemotherapy side effect prophylaxis
     Dosage: 1 DOSAGE FORM, CYCLE
     Route: 003
     Dates: start: 20201214, end: 20201214

REACTIONS (3)
  - Rash maculo-papular [Recovering/Resolving]
  - Erythema [Recovering/Resolving]
  - Pruritus [Recovering/Resolving]

NARRATIVE: CASE EVENT DATE: 20201215
